FAERS Safety Report 23343532 (Version 3)
Quarter: 2024Q3

REPORT INFORMATION
  Report Type: Spontaneous
  Country: FR (occurrence: FR)
  Receive Date: 20231227
  Receipt Date: 20240919
  Transmission Date: 20241017
  Serious: Yes (Hospitalization, Other)
  Sender: MYLAN
  Company Number: FR-MYLANLABS-2023M1136428

PATIENT
  Age: 29 Year
  Sex: Female

DRUGS (6)
  1. FLUTICASONE PROPIONATE\SALMETEROL XINAFOATE [Interacting]
     Active Substance: FLUTICASONE PROPIONATE\SALMETEROL XINAFOATE
     Indication: Asthma
     Dosage: UNK, BID, RECEIVED AT A DOSE OF 500/50?G
     Route: 055
  2. ITRACONAZOLE [Interacting]
     Active Substance: ITRACONAZOLE
     Indication: Bronchopulmonary aspergillosis
     Dosage: 200 MILLIGRAM, QD
     Route: 065
     Dates: start: 202011
  3. ITRACONAZOLE [Interacting]
     Active Substance: ITRACONAZOLE
     Indication: Bronchopulmonary aspergillosis allergic
  4. CLARITHROMYCIN [Interacting]
     Active Substance: CLARITHROMYCIN
     Indication: Mycobacterial infection
     Dosage: 500 MILLIGRAM, QD
     Route: 065
     Dates: start: 202012
  5. ETHAMBUTOL [Concomitant]
     Active Substance: ETHAMBUTOL HYDROCHLORIDE
     Indication: Mycobacterial infection
     Dosage: 500 MILLIGRAM, QD
     Route: 065
     Dates: start: 202012
  6. MOXIFLOXACIN [Concomitant]
     Active Substance: MOXIFLOXACIN
     Indication: Mycobacterial infection
     Dosage: 400 MILLIGRAM, QD
     Route: 065
     Dates: start: 202012

REACTIONS (7)
  - Drug interaction [Recovering/Resolving]
  - Cushing^s syndrome [Recovering/Resolving]
  - Adrenal insufficiency [Recovered/Resolved]
  - Osteoporosis [Recovered/Resolved]
  - Osteoporotic fracture [Recovering/Resolving]
  - Foot fracture [Recovering/Resolving]
  - Drug level increased [Recovering/Resolving]
